FAERS Safety Report 5336850-7 (Version None)
Quarter: 2007Q2

REPORT INFORMATION
  Report Type: 
  Country: None (occurrence: None)
  Receive Date: 20070524
  Receipt Date: 20070524
  Transmission Date: 20071010
  Serious: Yes (Other)
  Sender: FDA-Public Use
  Company Number: None

PATIENT
  Sex: Female
  Weight: 22.1 kg

DRUGS (1)
  1. PEG ASPARAGINASE 750 IU/ML ENZON PHARM [Suspect]
     Indication: ACUTE LYMPHOCYTIC LEUKAEMIA
     Dosage: 2050 IU IM
     Route: 030
     Dates: start: 20070510

REACTIONS (4)
  - COUGH [None]
  - EYELID OEDEMA [None]
  - RASH MACULAR [None]
  - RASH PRURITIC [None]
